FAERS Safety Report 25149988 (Version 1)
Quarter: 2025Q2

REPORT INFORMATION
  Report Type: Spontaneous
  Country: CA (occurrence: CA)
  Receive Date: 20250402
  Receipt Date: 20250402
  Transmission Date: 20250716
  Serious: Yes (Hospitalization, Other)
  Sender: PFIZER
  Company Number: CA-PFIZER INC-202300452000

PATIENT
  Age: 77 Year
  Sex: Female
  Weight: 86 kg

DRUGS (21)
  1. RUXIENCE [Suspect]
     Active Substance: RITUXIMAB-PVVR
     Indication: Granulomatosis with polyangiitis
     Route: 042
     Dates: start: 20221105, end: 20221115
  2. RUXIENCE [Suspect]
     Active Substance: RITUXIMAB-PVVR
     Route: 042
  3. RUXIENCE [Suspect]
     Active Substance: RITUXIMAB-PVVR
     Dosage: 750 MG, WEEKLY (FOR 4 WEEKS)
     Route: 042
     Dates: start: 20230504, end: 20230525
  4. RUXIENCE [Suspect]
     Active Substance: RITUXIMAB-PVVR
     Route: 042
     Dates: start: 20231218, end: 20231218
  5. RUXIENCE [Suspect]
     Active Substance: RITUXIMAB-PVVR
     Route: 042
     Dates: start: 20240103, end: 20240103
  6. RUXIENCE [Suspect]
     Active Substance: RITUXIMAB-PVVR
     Route: 042
     Dates: start: 20240910, end: 20240910
  7. RUXIENCE [Suspect]
     Active Substance: RITUXIMAB-PVVR
     Route: 042
     Dates: start: 20240924, end: 20240924
  8. RUXIENCE [Suspect]
     Active Substance: RITUXIMAB-PVVR
     Route: 042
     Dates: start: 20250327
  9. ACETAMINOPHEN [Concomitant]
     Active Substance: ACETAMINOPHEN
     Indication: Premedication
     Dates: start: 20231218, end: 20231218
  10. ALENDRONATE [Concomitant]
     Active Substance: ALENDRONATE SODIUM
  11. ATOVAQUONE [Concomitant]
     Active Substance: ATOVAQUONE
  12. CALCIUM CARBONATE [Concomitant]
     Active Substance: CALCIUM CARBONATE
  13. DULOXETINE [Concomitant]
     Active Substance: DULOXETINE
  14. DIPHENHYDRAMINE [Concomitant]
     Active Substance: DIPHENHYDRAMINE
     Indication: Premedication
     Dates: start: 20231218, end: 20231218
  15. INSULIN ASPART [Concomitant]
     Active Substance: INSULIN ASPART
  16. METHYLPREDNISOLONE [Concomitant]
     Active Substance: METHYLPREDNISOLONE
     Indication: Premedication
     Dates: start: 20231218, end: 20231218
  17. OZEMPIC [Concomitant]
     Active Substance: SEMAGLUTIDE
  18. PREDNISONE [Concomitant]
     Active Substance: PREDNISONE
  19. RABEPRAZOLE [Concomitant]
     Active Substance: RABEPRAZOLE
  20. ROSUVASTATIN [Concomitant]
     Active Substance: ROSUVASTATIN
  21. CHOLECALCIFEROL [Concomitant]
     Active Substance: CHOLECALCIFEROL

REACTIONS (8)
  - Fall [Recovered/Resolved]
  - Rib fracture [Recovered/Resolved]
  - Rash erythematous [Recovered/Resolved]
  - Pruritus [Recovered/Resolved]
  - Off label use [Unknown]
  - Off label use [Unknown]
  - Intentional product use issue [Unknown]
  - Incorrect dose administered [Unknown]

NARRATIVE: CASE EVENT DATE: 20231218
